FAERS Safety Report 7123696-2 (Version None)
Quarter: 2010Q4

REPORT INFORMATION
  Report Type: 
  Country: None (occurrence: None)
  Receive Date: 20101125
  Receipt Date: 20101112
  Transmission Date: 20110411
  Serious: Yes (Hospitalization, Other)
  Sender: FDA-Public Use
  Company Number: PHHY2010CA63928

PATIENT
  Sex: Female

DRUGS (7)
  1. ACLASTA [Suspect]
     Indication: OSTEOPOROSIS
     Dosage: 5 MG
     Route: 042
     Dates: start: 20091014
  2. NEXIUM [Concomitant]
  3. TAGAMET [Concomitant]
  4. AVAPRO [Concomitant]
  5. NAPROXEN [Concomitant]
  6. LASIX [Concomitant]
  7. ZOPICLONE [Concomitant]

REACTIONS (3)
  - BACK PAIN [None]
  - INJURY [None]
  - SPINAL LAMINECTOMY [None]
